FAERS Safety Report 7021281-4 (Version None)
Quarter: 2010Q3

REPORT INFORMATION
  Report Type: 
  Country: None (occurrence: None)
  Receive Date: 20100929
  Receipt Date: 20100924
  Transmission Date: 20110219
  Serious: Yes (Other)
  Sender: FDA-Public Use
  Company Number: US-PFIZER INC-2010122116

PATIENT
  Age: 8 Year
  Sex: Female

DRUGS (6)
  1. METHYLPREDNISOLONE SODIUM SUCCINATE [Suspect]
     Indication: DERMATOMYOSITIS
     Dosage: 30 MG/KG, 1X/DAY
     Route: 042
  2. PREDNISONE [Suspect]
     Indication: DERMATOMYOSITIS
     Dosage: 20 MG, 2X/DAY
     Route: 048
  3. PREDNISONE [Suspect]
     Dosage: 0.3 MG/KG, 1X/DAY
     Route: 048
  4. METHOTREXATE SODIUM [Concomitant]
     Indication: DERMATOMYOSITIS
     Dosage: 0.25 MG/KG, WEEKLY
     Route: 058
  5. METHOTREXATE SODIUM [Concomitant]
     Dosage: 0.5 MG/KG, WEEKLY
     Route: 048
  6. FOLIC ACID [Concomitant]
     Indication: DERMATOMYOSITIS
     Dosage: DAILY

REACTIONS (2)
  - OSTEONECROSIS [None]
  - OSTEOPOROSIS [None]
